FAERS Safety Report 8206369-4 (Version None)
Quarter: 2012Q1

REPORT INFORMATION
  Report Type: 
  Country: None (occurrence: None)
  Receive Date: 20120313
  Receipt Date: 20120308
  Transmission Date: 20120608
  Serious: Yes (Hospitalization)
  Sender: FDA-Public Use
  Company Number: PHHY2011AU113026

PATIENT
  Sex: Male

DRUGS (3)
  1. ESCITALOPRAM [Concomitant]
     Dosage: 3 MG, UNK
  2. CLOZARIL [Suspect]
     Dosage: 500 MG
     Route: 048
     Dates: start: 20100324
  3. CLOZARIL [Suspect]
     Dosage: 600 MG, UNK
     Route: 048

REACTIONS (5)
  - SCHIZOPHRENIA [None]
  - DEPRESSED MOOD [None]
  - PSYCHOTIC DISORDER [None]
  - HALLUCINATION, AUDITORY [None]
  - SUICIDAL IDEATION [None]
